FAERS Safety Report 20495257 (Version 1)
Quarter: 2022Q1

REPORT INFORMATION
  Report Type: Spontaneous
  Country: US (occurrence: US)
  Receive Date: 20220221
  Receipt Date: 20220221
  Transmission Date: 20220423
  Serious: Yes (Other)
  Sender: FDA-Public Use
  Company Number: US-PFIZER INC-202200232158

PATIENT
  Age: 60 Year
  Sex: Female

DRUGS (1)
  1. XELJANZ XR [Suspect]
     Active Substance: TOFACITINIB CITRATE
     Indication: Psoriatic arthropathy
     Dosage: 11 MG, DAILY
     Route: 048
     Dates: start: 202111, end: 20220120

REACTIONS (6)
  - Laryngeal oedema [Unknown]
  - Respiratory disorder [Unknown]
  - Rhinorrhoea [Recovering/Resolving]
  - Eye pruritus [Unknown]
  - Lacrimation increased [Unknown]
  - Aphonia [Recovering/Resolving]

NARRATIVE: CASE EVENT DATE: 20220101
